FAERS Safety Report 19624467 (Version 1)
Quarter: 2021Q3

REPORT INFORMATION
  Report Type: Spontaneous
  Country: US (occurrence: US)
  Receive Date: 20210728
  Receipt Date: 20210728
  Transmission Date: 20211014
  Serious: No
  Sender: FDA-Public Use
  Company Number: US-TEVA-2020-US-1849911

PATIENT

DRUGS (1)
  1. AUSTEDO [Suspect]
     Active Substance: DEUTETRABENAZINE
     Dosage: STARTED SIX MONTHS AGO, TOOK IT FOR 2 MONTHS ONLY
     Route: 065
     Dates: start: 202006, end: 2020

REACTIONS (3)
  - Drug ineffective [Unknown]
  - Agitation [Unknown]
  - Dyskinesia [Unknown]
